FAERS Safety Report 9257477 (Version 2)
Quarter: 2014Q1

REPORT INFORMATION
  Report Type: Spontaneous
  Country: US (occurrence: None)
  Receive Date: 20121212
  Receipt Date: 20130314
  Transmission Date: 20141002
  Serious: No
  Sender: FDA-Public Use
  Company Number: 1209USA005799

PATIENT
  Age: 52 Year
  Sex: Female

DRUGS (6)
  1. VICTRELIS [Suspect]
     Indication: HEPATITIS C
     Dates: start: 20120907
  2. RIBAVIRIN (RIBAVIRIN) CAPSULE [Suspect]
     Indication: HEPATITIS C
     Dates: start: 20120810, end: 2012
  3. PEGASYS (PEGINTERFERON ALFA-2A) [Suspect]
     Indication: HEPATITIS C
     Dates: start: 20120810
  4. XARELTO (RIVAROXABAN) [Concomitant]
  5. COUMADIN (WARFARIN SODIUM) [Concomitant]
  6. PROCRIT (EPOETIN ALFA) [Concomitant]

REACTIONS (23)
  - Pain [None]
  - Back pain [None]
  - Memory impairment [None]
  - Bruxism [None]
  - Crying [None]
  - Agitation [None]
  - Pollakiuria [None]
  - Limb injury [None]
  - Contusion [None]
  - International normalised ratio decreased [None]
  - Fatigue [None]
  - Red blood cell count decreased [None]
  - Arthralgia [None]
  - Red blood cell count decreased [None]
  - Nausea [None]
  - Pain [None]
  - Agitation [None]
  - Angiopathy [None]
  - Pain [None]
  - Haemoglobin decreased [None]
  - Laboratory test abnormal [None]
  - Anaemia [None]
  - Myalgia [None]
